FAERS Safety Report 5626775-1 (Version None)
Quarter: 2008Q1

REPORT INFORMATION
  Report Type: 
  Country: None (occurrence: None)
  Receive Date: 20080214
  Receipt Date: 20080204
  Transmission Date: 20080703
  Serious: Yes (Other)
  Sender: FDA-Public Use
  Company Number: US-PFIZER INC-2008011513

PATIENT
  Sex: Female
  Weight: 56.7 kg

DRUGS (1)
  1. LIPITOR [Suspect]

REACTIONS (1)
  - WEIGHT DECREASED [None]
